FAERS Safety Report 7956298-6 (Version None)
Quarter: 2011Q4

REPORT INFORMATION
  Report Type: 
  Country: None (occurrence: None)
  Receive Date: 20111205
  Receipt Date: 20111122
  Transmission Date: 20120403
  Serious: Yes (Hospitalization)
  Sender: FDA-Public Use
  Company Number: US-ELI_LILLY_AND_COMPANY-US201010000818

PATIENT
  Sex: Female

DRUGS (12)
  1. FORTEO [Suspect]
     Dosage: 20 UG, QD
     Route: 065
  2. FORTEO [Suspect]
     Dosage: 20 UG, QD
  3. ATROVENT [Concomitant]
  4. FORTEO [Suspect]
     Indication: OSTEOPOROSIS
     Dosage: 20 UG, QD
     Route: 065
  5. FORTEO [Suspect]
     Dosage: 20 UG, QD
  6. ADVAIR DISKUS 100/50 [Concomitant]
  7. FORTEO [Suspect]
     Dosage: 20 U, QD
     Route: 065
  8. FORTEO [Suspect]
     Dosage: 20 UG, QD
  9. FORTEO [Suspect]
     Dosage: 20 UG, QD
     Route: 065
  10. PREDNISONE TAB [Concomitant]
  11. CALCIUM [Concomitant]
  12. VENTOLIN [Concomitant]

REACTIONS (11)
  - STRESS [None]
  - PERIORBITAL HAEMATOMA [None]
  - FALL [None]
  - STENT PLACEMENT [None]
  - HEAD INJURY [None]
  - BACTERIAL INFECTION [None]
  - FEELING ABNORMAL [None]
  - CHEST DISCOMFORT [None]
  - LUNG INFECTION [None]
  - BLOOD CALCIUM INCREASED [None]
  - INJURY [None]
